FAERS Safety Report 12896295 (Version 1)
Quarter: 2016Q4

REPORT INFORMATION
  Report Type: Spontaneous
  Country: US (occurrence: US)
  Receive Date: 20161031
  Receipt Date: 20161031
  Transmission Date: 20170207
  Serious: No
  Sender: FDA-Public Use
  Company Number: US-JAZZ-2016-US-016286

PATIENT
  Sex: Female

DRUGS (16)
  1. IRON [Concomitant]
     Active Substance: IRON
  2. VITAMIN C [Concomitant]
     Active Substance: ASCORBIC ACID
  3. ALBUTEROL SULFATE. [Concomitant]
     Active Substance: ALBUTEROL SULFATE
  4. ALEVE [Concomitant]
     Active Substance: NAPROXEN SODIUM
  5. ZITHROMAX [Concomitant]
     Active Substance: AZITHROMYCIN DIHYDRATE
  6. XYREM [Suspect]
     Active Substance: SODIUM OXYBATE
     Dosage: 3 G, BID
     Route: 048
     Dates: start: 201104, end: 201506
  7. MULTIVITAMINS [Concomitant]
     Active Substance: VITAMINS
  8. XYREM [Suspect]
     Active Substance: SODIUM OXYBATE
     Dosage: DOSE ADJUSTMENTS
     Route: 048
     Dates: start: 201009, end: 201104
  9. PROVIGIL [Concomitant]
     Active Substance: MODAFINIL
  10. TESSALON [Concomitant]
     Active Substance: BENZONATATE
  11. XYREM [Suspect]
     Active Substance: SODIUM OXYBATE
     Indication: NARCOLEPSY
     Dosage: 2.25 G, BID
     Route: 048
     Dates: start: 201008, end: 201009
  12. TRINESSA [Concomitant]
     Active Substance: ETHINYL ESTRADIOL\NORGESTIMATE
  13. FISH OIL [Concomitant]
     Active Substance: FISH OIL
  14. LORATADINE. [Concomitant]
     Active Substance: LORATADINE
  15. TURMERIC [Concomitant]
     Active Substance: TURMERIC
  16. WELLBUTRIN [Concomitant]
     Active Substance: BUPROPION HYDROCHLORIDE

REACTIONS (2)
  - Tendonitis [Not Recovered/Not Resolved]
  - Syncope [Recovering/Resolving]

NARRATIVE: CASE EVENT DATE: 2016
